FAERS Safety Report 20023910 (Version 1)
Quarter: 2021Q4

REPORT INFORMATION
  Report Type: Spontaneous
  Country: US (occurrence: US)
  Receive Date: 20211102
  Receipt Date: 20211102
  Transmission Date: 20220303
  Serious: Yes (Death, Other)
  Sender: FDA-Public Use
  Company Number: US-PFIZER INC-202101382556

PATIENT
  Age: 54 Year
  Sex: Female

DRUGS (3)
  1. VFEND [Suspect]
     Active Substance: VORICONAZOLE
     Dosage: 50 MG (50 MG, 60 DAY SUPPLY)
  2. VFEND [Suspect]
     Active Substance: VORICONAZOLE
     Dosage: 200 MG (200 MG, 60 DAY SUPPLY)
  3. VFEND [Suspect]
     Active Substance: VORICONAZOLE
     Dosage: 250 MG, 2X/DAY (250 MG ORAL EVERY 12 HOURS)
     Route: 048

REACTIONS (1)
  - Death [Fatal]
